FAERS Safety Report 17756258 (Version 7)
Quarter: 2022Q1

REPORT INFORMATION
  Report Type: Spontaneous
  Country: US (occurrence: US)
  Receive Date: 20200507
  Receipt Date: 20220112
  Transmission Date: 20220423
  Serious: No
  Sender: FDA-Public Use
  Company Number: US-PFIZER INC-2019523216

PATIENT
  Age: 12 Year
  Sex: Male
  Weight: 34.47 kg

DRUGS (3)
  1. GENOTROPIN [Suspect]
     Active Substance: SOMATROPIN
     Indication: Growth hormone deficiency
     Dosage: 1.4 MG, [1.4 MG INJECTION AT ROTATED SITES: BELLY, LEGS, AND BUTT]
     Dates: start: 20190515
  2. GENOTROPIN [Suspect]
     Active Substance: SOMATROPIN
     Dosage: UNK
  3. GENOTROPIN [Suspect]
     Active Substance: SOMATROPIN
     Dosage: 1.6 MG, DAILY (1.6MG 1 INJECTION DAILY)
     Dates: start: 201905

REACTIONS (6)
  - Incorrect dose administered [Unknown]
  - Product dose omission issue [Unknown]
  - Device use error [Unknown]
  - Drug dose omission by device [Unknown]
  - Device breakage [Unknown]
  - Device leakage [Unknown]

NARRATIVE: CASE EVENT DATE: 20191123
